FAERS Safety Report 6089412-0 (Version None)
Quarter: 2009Q1

REPORT INFORMATION
  Report Type: 
  Country: None (occurrence: None)
  Receive Date: 20090224
  Receipt Date: 20090216
  Transmission Date: 20090719
  Serious: Yes (Death, Other)
  Sender: FDA-Public Use
  Company Number: US-ROCHE-614835

PATIENT
  Age: 53 Year
  Sex: Male

DRUGS (2)
  1. CEFTRIAXONE [Suspect]
     Indication: DRUG USE FOR UNKNOWN INDICATION
     Route: 065
  2. AZITHROMYCIN [Suspect]
     Indication: DRUG USE FOR UNKNOWN INDICATION
     Route: 065

REACTIONS (2)
  - DEATH [None]
  - HEPATOTOXICITY [None]
